FAERS Safety Report 6264274-7 (Version None)
Quarter: 2009Q3

REPORT INFORMATION
  Report Type: 
  Country: None (occurrence: None)
  Receive Date: 20090706
  Receipt Date: 20090114
  Transmission Date: 20100115
  Serious: Yes (Other)
  Sender: FDA-Public Use
  Company Number: 608843

PATIENT
  Age: 70 Year
  Sex: Female

DRUGS (20)
  1. CELLCEPT [Suspect]
     Indication: CORNEAL GRAFT REJECTION
     Dosage: 750 MG 2 PER DAY ORAL
     Route: 048
     Dates: start: 20041101
  2. ACEBUTOLOL [Concomitant]
  3. ACIDOPHILUS (LACTOBACILLUS ACIDOPHILUS) [Concomitant]
  4. CARISOPRODOL [Concomitant]
  5. CITRACAL + D (CALCIUM CITRATE/*CHOLECALCIFEROL/*ERGOCALCIFEROL/*PARICA [Concomitant]
  6. NEXIUM [Concomitant]
  7. FOLTX (CYANOCOBALAMIN/FOLIC ACID/PYRIDOXINE HYDROCHLORIDE) [Concomitant]
  8. FUROSEMIDE [Concomitant]
  9. GLUCOSAMINE (GLUCOSAMINE) [Concomitant]
  10. ACETAMINOPHEN AND HYDROCODONE BITARTRATE [Concomitant]
  11. MAG-OX (MAGNESIUM OXIDE) [Concomitant]
  12. METHAZOLAMIDE (METHAZOLAMIDE) [Concomitant]
  13. NASONEX [Concomitant]
  14. MURO 128 (SODIUM CHLORIDE) [Concomitant]
  15. POTASSIUM CHLORIDE [Concomitant]
  16. PREDNISOLONE ACETATE [Concomitant]
  17. PRESERVISION LUTEIN (LUTEIN/MINERALS NOS/MULTIVITAMIN NOS) [Concomitant]
  18. SYNTHROID [Concomitant]
  19. ZOCOR [Concomitant]
  20. AMBIEN [Concomitant]

REACTIONS (3)
  - BREAST CANCER METASTATIC [None]
  - GASTRIC DISORDER [None]
  - METASTASES TO LYMPH NODES [None]
